FAERS Safety Report 10069954 (Version 2)
Quarter: 2014Q2

REPORT INFORMATION
  Report Type: Spontaneous
  Country: GB (occurrence: GB)
  Receive Date: 20140410
  Receipt Date: 20140428
  Transmission Date: 20141212
  Serious: Yes (Hospitalization, Other)
  Sender: FDA-Public Use
  Company Number: GB-JNJFOC-20140401149

PATIENT
  Age: 67 Year
  Sex: Female

DRUGS (5)
  1. STELARA [Suspect]
     Indication: PSORIASIS
     Route: 058
     Dates: start: 20130311, end: 20140106
  2. FLUDROCORTISONE [Concomitant]
     Indication: HYPOTENSION
     Route: 065
     Dates: start: 2014
  3. MIDODRINE [Concomitant]
     Indication: HYPOTENSION
     Route: 065
     Dates: start: 2014
  4. SIMVASTATIN [Concomitant]
     Indication: BLOOD CHOLESTEROL
     Route: 065
  5. LANSOPRAZOLE [Concomitant]
     Indication: DYSPEPSIA
     Route: 065

REACTIONS (1)
  - Autonomic neuropathy [Recovered/Resolved]
